FAERS Safety Report 10334110 (Version 1)
Quarter: 2014Q3

REPORT INFORMATION
  Report Type: Spontaneous
  Country: US (occurrence: None)
  Receive Date: 20140721
  Receipt Date: 20140721
  Transmission Date: 20150326
  Serious: Yes (Hospitalization)
  Sender: FDA-Public Use
  Company Number: None

PATIENT
  Age: 27 Year
  Sex: Male
  Weight: 63.5 kg

DRUGS (1)
  1. PATADAY [Suspect]
     Active Substance: OLOPATADINE HYDROCHLORIDE
     Indication: EYE IRRITATION
     Dosage: 1 DROP ONCE DAILY INTO THE EYE
     Route: 047
     Dates: start: 20140719, end: 20140719

REACTIONS (3)
  - Dizziness [None]
  - Blood pressure decreased [None]
  - Loss of consciousness [None]

NARRATIVE: CASE EVENT DATE: 20140719
